FAERS Safety Report 12148975 (Version 3)
Quarter: 2016Q1

REPORT INFORMATION
  Report Type: Spontaneous
  Country: AE (occurrence: AE)
  Receive Date: 20160304
  Receipt Date: 20160324
  Transmission Date: 20160526
  Serious: Yes (Hospitalization, Other)
  Sender: FDA-Public Use
  Company Number: PHHY2016AE027259

PATIENT
  Age: 51 Year
  Sex: Male
  Weight: 86 kg

DRUGS (1)
  1. COSENTYX [Suspect]
     Active Substance: SECUKINUMAB
     Indication: PSORIASIS
     Dosage: 300 MG, QMO
     Route: 058
     Dates: start: 20151220, end: 20160220

REACTIONS (11)
  - Pyrexia [Unknown]
  - Pain [Recovering/Resolving]
  - Haemorrhoids [Unknown]
  - Proctalgia [Recovering/Resolving]
  - Colitis ulcerative [Recovering/Resolving]
  - Gastrointestinal sounds abnormal [Recovering/Resolving]
  - Weight decreased [Unknown]
  - Constipation [Recovering/Resolving]
  - Diarrhoea [Recovering/Resolving]
  - Haematochezia [Recovering/Resolving]
  - Anal incontinence [Recovering/Resolving]

NARRATIVE: CASE EVENT DATE: 20160301
